FAERS Safety Report 4640641-X (Version None)
Quarter: 2005Q2

REPORT INFORMATION
  Report Type: 
  Country: None (occurrence: None)
  Receive Date: 20050419
  Receipt Date: 20050408
  Transmission Date: 20051028
  Serious: Yes (Hospitalization, Other)
  Sender: FDA-Public Use
  Company Number: 2005057286

PATIENT
  Age: 70 Year
  Sex: Female

DRUGS (2)
  1. NORVASC [Suspect]
     Indication: HYPERTENSION
     Dosage: 5 MG (5 MG, ONCE A DAY), ORAL
     Route: 048
  2. ASPIRIN [Concomitant]

REACTIONS (7)
  - BLOOD PRESSURE SYSTOLIC INCREASED [None]
  - EPISTAXIS [None]
  - EYE HAEMORRHAGE [None]
  - HEADACHE [None]
  - HYPERLIPIDAEMIA [None]
  - MOUTH HAEMORRHAGE [None]
  - REFUSAL OF TREATMENT BY PATIENT [None]
